FAERS Safety Report 15019183 (Version 1)
Quarter: 2018Q2

REPORT INFORMATION
  Report Type: Report from Study
  Country: DE (occurrence: DE)
  Receive Date: 20180617
  Receipt Date: 20180617
  Transmission Date: 20180711
  Serious: Yes (Other)
  Sender: FDA-Public Use
  Company Number: DE-BIOGEN-2018BI00595231

PATIENT
  Age: 53 Year
  Sex: Male

DRUGS (1)
  1. TYSABRI [Suspect]
     Active Substance: NATALIZUMAB
     Indication: RELAPSING-REMITTING MULTIPLE SCLEROSIS
     Dosage: MOST RECENT TYSABRI INFUSION ON 20 MAR 2018; IN TOTAL 58 INFUSIONS
     Route: 042
     Dates: start: 20120828

REACTIONS (1)
  - Pituitary tumour [Recovered/Resolved]

NARRATIVE: CASE EVENT DATE: 20171214
